FAERS Safety Report 9319426 (Version 13)
Quarter: 2014Q3

REPORT INFORMATION
  Report Type: Spontaneous
  Country: US (occurrence: US)
  Receive Date: 20130530
  Receipt Date: 20140721
  Transmission Date: 20150326
  Serious: Yes (Hospitalization)
  Sender: FDA-Public Use
  Company Number: US-GLAXOSMITHKLINE-A0979402A

PATIENT
  Age: 51 Year
  Sex: Female

DRUGS (2)
  1. REVATIO [Concomitant]
     Active Substance: SILDENAFIL CITRATE
  2. FLOLAN [Suspect]
     Active Substance: EPOPROSTENOL SODIUM
     Indication: PULMONARY ARTERIAL HYPERTENSION
     Dosage: 48NGKM CONTINUOUS
     Route: 042
     Dates: start: 20060620

REACTIONS (8)
  - Device leakage [Recovered/Resolved]
  - Device related infection [Unknown]
  - Cerebrovascular accident [Recovered/Resolved]
  - Loss of consciousness [Recovered/Resolved]
  - Investigation [Unknown]
  - Convulsion [Unknown]
  - Pulmonary hypertension [Unknown]
  - Medical device complication [Recovered/Resolved]

NARRATIVE: CASE EVENT DATE: 201205
